FAERS Safety Report 13953198 (Version 5)
Quarter: 2018Q4

REPORT INFORMATION
  Report Type: Spontaneous
  Country: DE (occurrence: DE)
  Receive Date: 20170911
  Receipt Date: 20180928
  Transmission Date: 20190204
  Serious: Yes (Death, Life-Threatening, Hospitalization, Other)
  Sender: FDA-Public Use
  Company Number: DE-AUROBINDO-AUR-APL-2017-40065

PATIENT
  Sex: Female

DRUGS (13)
  1. MIRTAZAPINE 30MG [Suspect]
     Active Substance: MIRTAZAPINE
     Indication: SUICIDE ATTEMPT
     Dosage: DOSE PER KG BODY WEIGHT: 13 MG/KG
     Route: 048
  2. QUETIAPINE PROLONGED-RELEASE TABLET [Suspect]
     Active Substance: QUETIAPINE
     Dosage: ABSOLUTE TOTAL QUANTITY 14.5 GRAM, DOSE 25 MG/KG ,300 MG
     Route: 065
  3. IBUPROFEN. [Suspect]
     Active Substance: IBUPROFEN
     Dosage: 600 MILLIGRAM, TOTAL AMOUNT: 3 G
     Route: 065
  4. QUETIAPINE PROLONGED-RELEASE TABLET [Suspect]
     Active Substance: QUETIAPINE
     Dosage: 300 MILLIGRAM, TOTAL AMOUNT: 8.7G
     Route: 065
  5. ELDER FLOWER, GENTIAN ROOT, PRIMULA FLOWER WITH CALYX, RUMEX ACETOSA, [Suspect]
     Active Substance: HERBALS
     Indication: SUICIDE ATTEMPT
     Dosage: 5 DOSAGE FORM
     Route: 065
  6. QUETIAPINE PROLONGED-RELEASE TABLET [Suspect]
     Active Substance: QUETIAPINE
     Indication: SUICIDE ATTEMPT
     Dosage: 29 DF, 200 MG
  7. IBUPROFEN. [Suspect]
     Active Substance: IBUPROFEN
     Indication: SUICIDE ATTEMPT
     Dosage: 5 DOSAGE FORM (400 MG)
     Route: 065
  8. IBUPROFEN. [Suspect]
     Active Substance: IBUPROFEN
     Dosage: 5 GRAM, SINGLE DOSE
     Route: 048
  9. IBUPROFEN. [Suspect]
     Active Substance: IBUPROFEN
     Dosage: 400 MILLIGRAM, TOTAL AMOUNT: 2 G
     Route: 065
  10. SINUPRET FORTE [Suspect]
     Active Substance: HERBALS
     Indication: PRODUCT USED FOR UNKNOWN INDICATION
     Dosage: UNK
     Route: 065
  11. IBUPROFEN. [Suspect]
     Active Substance: IBUPROFEN
     Dosage: 600MG,ABSOLUTE TOTAL QUANTITY 5 GRAM. DOSE; 8 MG/KG BODY WEIGHT
     Route: 065
  12. MIRTAZAPINE 30MG [Suspect]
     Active Substance: MIRTAZAPINE
     Dosage: 30 MILLIGRAM, TOTAL AMOUNT: 7.5 G
     Route: 048
  13. QUETIAPINE PROLONGED-RELEASE TABLET [Suspect]
     Active Substance: QUETIAPINE
     Dosage: 200 MILLIGRAM, TOTAL AMOUNT: 5.8G
     Route: 065

REACTIONS (10)
  - Hypotension [Unknown]
  - Loss of consciousness [Unknown]
  - Respiratory failure [Fatal]
  - Seizure [Unknown]
  - Completed suicide [Fatal]
  - Toxicity to various agents [Unknown]
  - Hypoxia [Unknown]
  - Intentional product misuse [Unknown]
  - Acute respiratory distress syndrome [Unknown]
  - Drug interaction [Unknown]
